FAERS Safety Report 5554301-4 (Version None)
Quarter: 2007Q4

REPORT INFORMATION
  Report Type: 
  Country: None (occurrence: None)
  Receive Date: 20071213
  Receipt Date: 20071204
  Transmission Date: 20080405
  Serious: Yes (Hospitalization)
  Sender: FDA-Public Use
  Company Number: D0054953A

PATIENT
  Sex: Female

DRUGS (6)
  1. ADARTREL [Suspect]
     Dosage: 1.5MG PER DAY
     Route: 048
     Dates: start: 20070101, end: 20071031
  2. SIFROL [Concomitant]
  3. UNKNOWN DIURETIC [Concomitant]
  4. PLAVIX [Concomitant]
     Dosage: 75MG IN THE MORNING
  5. LORZAAR [Concomitant]
  6. RESTEX [Concomitant]
     Dosage: 100MG IN THE MORNING

REACTIONS (16)
  - ARTERIAL DISORDER [None]
  - CEREBELLAR ATROPHY [None]
  - CEREBRAL ATROPHY [None]
  - CEREBRAL MICROANGIOPATHY [None]
  - CHEST DISCOMFORT [None]
  - CIRCULATORY COLLAPSE [None]
  - HEADACHE [None]
  - HERPES ZOSTER [None]
  - HYPONATRAEMIA [None]
  - MITRAL VALVE INCOMPETENCE [None]
  - MITRAL VALVE PROLAPSE [None]
  - MOTOR DYSFUNCTION [None]
  - MUSCULOSKELETAL CHEST PAIN [None]
  - POOR QUALITY SLEEP [None]
  - SYNCOPE [None]
  - TRANSIENT ISCHAEMIC ATTACK [None]
